FAERS Safety Report 10785740 (Version 1)
Quarter: 2015Q1

REPORT INFORMATION
  Report Type: Spontaneous
  Country: JP (occurrence: JP)
  Receive Date: 20150211
  Receipt Date: 20150211
  Transmission Date: 20150721
  Serious: Yes (Hospitalization, Other)
  Sender: FDA-Public Use
  Company Number: JP-009507513-1502JPN004079

PATIENT
  Sex: Female

DRUGS (3)
  1. FOSAMAX [Suspect]
     Active Substance: ALENDRONATE SODIUM
     Dosage: 35 MG, WEEKLY; EVERY SATURDAY
     Route: 048
     Dates: start: 2011
  2. DOCETAXEL. [Concomitant]
     Active Substance: DOCETAXEL
     Indication: NEOPLASM MALIGNANT
     Dosage: DAILY DOSAGE UNKNOWN; INTERVAL: 3 WEEKS
     Route: 041
  3. ENDOXAN [Concomitant]
     Active Substance: CYCLOPHOSPHAMIDE
     Indication: NEOPLASM MALIGNANT
     Dosage: DAILY DOSAGE UNKNOWN; INTERVAL: 3 WEEKS
     Route: 041

REACTIONS (5)
  - Breast cancer recurrent [Unknown]
  - Constipation [Unknown]
  - Nausea [Unknown]
  - Pain [Unknown]
  - Diarrhoea [Unknown]

NARRATIVE: CASE EVENT DATE: 2014
